FAERS Safety Report 5045730-6 (Version None)
Quarter: 2006Q2

REPORT INFORMATION
  Report Type: 
  Country: None (occurrence: None)
  Receive Date: 20060601
  Receipt Date: 20060315
  Transmission Date: 20061013
  Serious: No
  Sender: FDA-Public Use
  Company Number: 2006-BP-00116BP

PATIENT
  Age: 65 Year
  Sex: Female

DRUGS (3)
  1. SPIRIVA [Suspect]
     Indication: CHRONIC OBSTRUCTIVE PULMONARY DISEASE
     Dosage: 18 MCG (18 MCG),PO
     Route: 048
     Dates: start: 20050101
  2. LIPITOR [Suspect]
     Dosage: PO
     Route: 048
  3. HYDROCHLOROTHIAZIDE [Concomitant]

REACTIONS (1)
  - MUSCLE FATIGUE [None]
